FAERS Safety Report 8261083 (Version 3)
Quarter: 2013Q4

REPORT INFORMATION
  Report Type: Report from Study
  Country: GB (occurrence: GB)
  Receive Date: 20111123
  Receipt Date: 20131210
  Transmission Date: 20140711
  Serious: Yes (Hospitalization)
  Sender: FDA-Public Use
  Company Number: GB-MILLENNIUM PHARMACEUTICALS, INC.-2011-05833

PATIENT
  Sex: 0

DRUGS (18)
  1. VELCADE [Suspect]
     Indication: PLASMA CELL MYELOMA
     Dosage: 2.3 MG, UNK
     Route: 042
     Dates: start: 20110906, end: 20111014
  2. VELCADE [Suspect]
     Dosage: 2.2 MG, UNK
     Route: 042
     Dates: start: 20111101, end: 20111101
  3. VELCADE [Suspect]
     Dosage: 1.7 MG, UNK
     Route: 042
     Dates: start: 20111104, end: 20111108
  4. IDARUBICIN [Suspect]
     Indication: PLASMA CELL MYELOMA
     Dosage: 10 MG, UNK
     Route: 048
     Dates: start: 20110909, end: 20111105
  5. MELPHALAN [Suspect]
     Indication: PLASMA CELL MYELOMA
     Dosage: 27 MG, UNK
     Route: 042
     Dates: start: 20110909, end: 20111104
  6. DIHYDROCODEINE [Concomitant]
     Indication: BACK PAIN
     Dosage: 30 MG, UNK
     Dates: start: 20110924
  7. CAPSAICIN [Concomitant]
     Indication: BACK PAIN
     Dosage: UNK
     Dates: start: 20111004
  8. GRANULOCYTE COLONY-STIMULATING FACTOR NOS [Concomitant]
     Indication: PROPHYLAXIS
     Dosage: 30 MG, UNK
     Route: 058
     Dates: start: 20110920, end: 20110927
  9. GRANULOCYTE COLONY-STIMULATING FACTOR NOS [Concomitant]
     Dosage: 300 MG, UNK
     Route: 058
     Dates: start: 20111007, end: 20111010
  10. GRANULOCYTE COLONY-STIMULATING FACTOR NOS [Concomitant]
     Dosage: 300 MG, UNK
     Route: 058
     Dates: start: 20111025, end: 20111031
  11. PLATELETS, HUMAN BLOOD [Concomitant]
     Indication: PLATELET COUNT DECREASED
     Dosage: 1 UNK, UNK
     Dates: start: 20111011, end: 20111011
  12. PLATELETS, HUMAN BLOOD [Concomitant]
     Dosage: UNK
     Dates: start: 20111014, end: 20111017
  13. RED BLOOD CELLS [Concomitant]
     Indication: ANAEMIA
     Dosage: 2 UNK, UNK
     Dates: start: 20111011, end: 20111011
  14. METOCLOPRAMIDE [Concomitant]
     Indication: PROPHYLAXIS OF NAUSEA AND VOMITING
     Dosage: 10 MG, UNK
     Route: 048
     Dates: start: 20110906
  15. ONDANSETRON [Concomitant]
     Indication: NAUSEA
     Dosage: 8 MG, UNK
     Dates: start: 20111011
  16. LEVOMEPROMAZINE [Concomitant]
     Indication: NAUSEA
     Dosage: 8 MG, UNK
     Dates: start: 20111011
  17. AMITRIPTILINA [Concomitant]
     Indication: NEUROPATHY PERIPHERAL
     Dosage: 25 MG, UNK
     Route: 048
     Dates: start: 20110924
  18. FLUCLOXACILLIN [Concomitant]
     Indication: LOCALISED INFECTION
     Dosage: 1000 MG, UNK
     Dates: start: 20111108, end: 20111111

REACTIONS (1)
  - Infection [Recovered/Resolved]
